FAERS Safety Report 9879345 (Version 5)
Quarter: 2014Q1

REPORT INFORMATION
  Report Type: Report from Study
  Country: DE (occurrence: DE)
  Receive Date: 20140206
  Receipt Date: 20140306
  Transmission Date: 20141002
  Serious: Yes (Hospitalization, Other)
  Sender: FDA-Public Use
  Company Number: DE-PFIZER INC-2013350460

PATIENT
  Age: 77 Year
  Sex: Female
  Weight: 64 kg

DRUGS (12)
  1. INLYTA [Suspect]
     Dosage: 5 MG, 2X/DAY (IN MORNING, AT NIGHT)
     Dates: start: 20130923, end: 20131209
  2. LANTUS [Suspect]
     Indication: DIABETES MELLITUS
     Dosage: UNK
     Route: 058
     Dates: start: 20130821
  3. NOVAMINOSULFON [Concomitant]
     Indication: PAIN
     Dosage: UNK
     Route: 048
     Dates: start: 20090723
  4. ACC [Concomitant]
     Indication: BRONCHITIS CHRONIC
     Dosage: UNK
     Route: 048
     Dates: start: 20090219
  5. PANTOZOL [Concomitant]
     Indication: GASTROOESOPHAGEAL REFLUX DISEASE
     Dosage: UNK
     Route: 048
     Dates: start: 20090723
  6. OBSIDAN [Concomitant]
     Indication: HYPERTENSION
     Dosage: UNK
     Route: 048
     Dates: start: 19970101
  7. ALLOPURINOL [Concomitant]
     Indication: HYPERURICAEMIA
     Dosage: UNK
     Route: 048
     Dates: start: 20090723
  8. VALSARTAN [Concomitant]
     Indication: HYPERTENSION
     Dosage: UNK
     Route: 048
     Dates: start: 19970101
  9. AMLODIPINE [Concomitant]
     Indication: HYPERTENSION
     Dosage: UNK
     Route: 048
     Dates: start: 19970101
  10. MCP [Concomitant]
     Dosage: UNK
  11. AMARYL [Concomitant]
     Indication: DIABETES MELLITUS
     Dosage: UNK
     Route: 048
     Dates: start: 20081118
  12. ACTRAPID [Concomitant]
     Dosage: UNK

REACTIONS (12)
  - Herpes zoster [Recovered/Resolved]
  - Hyponatraemia [Recovered/Resolved]
  - Diarrhoea [Recovered/Resolved]
  - Blood glucose abnormal [Recovered/Resolved]
  - Dry mouth [Recovered/Resolved]
  - Blood creatinine increased [Recovered/Resolved]
  - Blood cholesterol increased [Recovered/Resolved]
  - Aspartate aminotransferase increased [Recovered/Resolved]
  - Blood lactate dehydrogenase increased [Recovered/Resolved]
  - Blood glucose decreased [Recovered/Resolved]
  - Blood sodium decreased [Recovered/Resolved]
  - Blood thyroid stimulating hormone decreased [Recovered/Resolved]
